FAERS Safety Report 7493900-X (Version None)
Quarter: 2011Q2

REPORT INFORMATION
  Report Type: 
  Country: None (occurrence: None)
  Receive Date: 20110520
  Receipt Date: 20110506
  Transmission Date: 20111010
  Serious: Yes (Disabling)
  Sender: FDA-Public Use
  Company Number: FR-CELGENEUS-056-50794-11050871

PATIENT
  Sex: Female

DRUGS (6)
  1. VIDAZA [Suspect]
     Dosage: 75 MILLIGRAM/KILOGRAM
     Route: 051
     Dates: start: 20101227, end: 20110102
  2. DEPAKENE [Concomitant]
     Indication: EPILEPSY
     Dosage: 1500 MILLIGRAM
     Route: 048
  3. DUPHALAC [Concomitant]
     Dosage: 4 DOSAGE FORMS
     Route: 048
  4. ONDANSERTRON HYDROCHLORIDE [Suspect]
     Route: 048
     Dates: start: 20101227, end: 20110102
  5. HYDROCORTISONE [Concomitant]
     Dosage: 20 MILLIGRAM
     Route: 048
  6. KEPPRA [Concomitant]
     Indication: EPILEPSY
     Dosage: 1000 MILLIGRAM
     Route: 048

REACTIONS (1)
  - EPILEPSY [None]
